FAERS Safety Report 21271951 (Version 2)
Quarter: 2022Q4

REPORT INFORMATION
  Report Type: Report from Study
  Country: US (occurrence: US)
  Receive Date: 20220830
  Receipt Date: 20221207
  Transmission Date: 20230112
  Serious: Yes (Hospitalization, Other)
  Sender: FDA-Public Use
  Company Number: US-ABBVIE-22K-163-4519305-00

PATIENT
  Sex: Female

DRUGS (2)
  1. IMBRUVICA [Suspect]
     Active Substance: IBRUTINIB
     Indication: Chronic lymphocytic leukaemia
     Dosage: TAKE 280 MG TABLET BY MOUTH 4 DAYS A WEEK ON TUESDAY, THURSDAY, SATURDAY AND SUNDAY
     Route: 048
  2. IMBRUVICA [Suspect]
     Active Substance: IBRUTINIB
     Indication: Chronic lymphocytic leukaemia
     Dosage: 420 MG TABLET BY MOUTH 3 DAYS A WEEK ON MONDAY, WEDNESDAY AND FRIDAY.
     Route: 048

REACTIONS (8)
  - Leukaemia [Unknown]
  - White blood cell count increased [Unknown]
  - Respiratory disorder [Unknown]
  - Cardiac disorder [Unknown]
  - Fatigue [Unknown]
  - Dyspepsia [Unknown]
  - Atrial fibrillation [Unknown]
  - Drug interaction [Unknown]
